FAERS Safety Report 4294643-6 (Version None)
Quarter: 2004Q1

REPORT INFORMATION
  Report Type: 
  Country: None (occurrence: None)
  Receive Date: 20040211
  Receipt Date: 20040126
  Transmission Date: 20041129
  Serious: Yes (Other)
  Sender: FDA-Public Use
  Company Number: EWC040137810

PATIENT
  Age: 70 Year
  Sex: Female

DRUGS (2)
  1. XIGRIS [Suspect]
     Indication: SEPTIC SHOCK
     Dosage: 24 UG / KG / HR
     Dates: start: 20040125, end: 20040126
  2. ANTIBIOTICS [Concomitant]

REACTIONS (1)
  - THROMBOCYTOPENIA [None]
